FAERS Safety Report 18887327 (Version 1)
Quarter: 2021Q1

REPORT INFORMATION
  Report Type: Spontaneous
  Country: US (occurrence: US)
  Receive Date: 20210212
  Receipt Date: 20210212
  Transmission Date: 20210420
  Serious: No
  Sender: FDA-Public Use
  Company Number: US-ATHENEX PHARMACEUTICAL SOLUTION-2106690

PATIENT
  Age: 47 Year
  Sex: Male
  Weight: 102 kg

DRUGS (2)
  1. NOREPINEPHRINE INJECTION IN 5% DEXTROSE [Suspect]
     Active Substance: NOREPINEPHRINE
     Indication: HYPOTENSION
     Route: 041
  2. NOREPINEPHRINE. [Suspect]
     Active Substance: NOREPINEPHRINE
     Route: 041

REACTIONS (1)
  - Drug ineffective [Recovered/Resolved]

NARRATIVE: CASE EVENT DATE: 20210203
